FAERS Safety Report 6006137-8 (Version None)
Quarter: 2008Q4

REPORT INFORMATION
  Report Type: 
  Country: None (occurrence: None)
  Receive Date: 20081217
  Receipt Date: 20080325
  Transmission Date: 20090506
  Serious: No
  Sender: FDA-Public Use
  Company Number: US-BAUSCH-2008BL001387

PATIENT
  Age: 62 Year
  Sex: Female

DRUGS (4)
  1. ZYLET [Suspect]
     Indication: BLEPHARITIS
     Route: 047
     Dates: start: 20080320, end: 20080320
  2. ZYLET [Suspect]
     Indication: LACRIMATION INCREASED
     Route: 047
     Dates: start: 20080320, end: 20080320
  3. ZYLET [Suspect]
     Route: 047
     Dates: start: 20080321, end: 20080321
  4. ZYLET [Suspect]
     Route: 047
     Dates: start: 20080321, end: 20080321

REACTIONS (4)
  - EYE PAIN [None]
  - EYE PRURITUS [None]
  - HEADACHE [None]
  - LACRIMATION INCREASED [None]
